FAERS Safety Report 12012841 (Version 2)
Quarter: 2016Q1

REPORT INFORMATION
  Report Type: Spontaneous
  Country: JP (occurrence: JP)
  Receive Date: 20160205
  Receipt Date: 20160315
  Transmission Date: 20160526
  Serious: Yes (Hospitalization)
  Sender: FDA-Public Use
  Company Number: JP-MALLINCKRODT-T201600345

PATIENT
  Age: 53 Year
  Sex: Female
  Weight: 46 kg

DRUGS (59)
  1. METHADONE [Suspect]
     Active Substance: METHADONE HYDROCHLORIDE
     Dosage: 20 MG, 40 MG DAILY DOSE
     Route: 048
     Dates: start: 20140723, end: 20140724
  2. METHADONE [Suspect]
     Active Substance: METHADONE HYDROCHLORIDE
     Dosage: 20 MG, 60 MG DAILY DOSE
     Route: 048
     Dates: start: 20140730, end: 20140805
  3. OXIFAST [Concomitant]
     Active Substance: OXYCODONE
     Dosage: 400 MG
     Route: 051
     Dates: start: 20140707, end: 20140722
  4. LYRICA [Concomitant]
     Active Substance: PREGABALIN
     Dosage: 150 MG
     Route: 048
     Dates: start: 20140623, end: 20140627
  5. LYRICA [Concomitant]
     Active Substance: PREGABALIN
     Dosage: 300 MG
     Route: 048
     Dates: start: 20140627
  6. FUROSEMIDE. [Concomitant]
     Active Substance: FUROSEMIDE
     Dosage: 20 MG
     Route: 048
     Dates: start: 20140630
  7. MIDAZOLAM [Concomitant]
     Active Substance: MIDAZOLAM\MIDAZOLAM HYDROCHLORIDE
     Dosage: 10 MG
     Route: 051
     Dates: start: 20140604, end: 20140614
  8. OLIVES [Concomitant]
     Active Substance: LIDOCAINE HYDROCHLORIDE
     Dosage: 750 MG
     Route: 051
     Dates: start: 20140607, end: 20140622
  9. RANITIDINE [Concomitant]
     Active Substance: RANITIDINE\RANITIDINE HYDROCHLORIDE
     Dosage: 100 MG
     Route: 051
     Dates: start: 20140607, end: 20140614
  10. KETALAR [Concomitant]
     Active Substance: KETAMINE HYDROCHLORIDE
     Indication: ANALGESIC THERAPY
     Dosage: 50 MG
     Route: 051
     Dates: start: 20140605, end: 20140606
  11. TAKEPRON [Concomitant]
     Active Substance: LANSOPRAZOLE
     Dosage: 15 MG
     Route: 048
     Dates: end: 20140605
  12. LYRICA [Concomitant]
     Active Substance: PREGABALIN
     Indication: ANALGESIC THERAPY
     Dosage: 150 MG
     Route: 048
     Dates: end: 20140605
  13. BFLUID [Concomitant]
     Active Substance: AMINO ACIDS\DEXTROSE\ELECTROLYTES NOS\VITAMINS
     Dosage: 500 ML
     Route: 051
     Dates: start: 20140604, end: 20140604
  14. GASMOTIN [Concomitant]
     Active Substance: MOSAPRIDE CITRATE
     Dosage: 15 MG
     Route: 048
     Dates: start: 20140623
  15. KETALAR [Concomitant]
     Active Substance: KETAMINE HYDROCHLORIDE
     Dosage: 50 MG
     Route: 051
     Dates: start: 20140627, end: 20140629
  16. FLUNITRAZEPAM [Concomitant]
     Active Substance: FLUNITRAZEPAM
     Dosage: 1 MG
     Route: 048
     Dates: start: 20140616
  17. RIVOTRIL [Concomitant]
     Active Substance: CLONAZEPAM
     Dosage: 1 MG
     Route: 048
     Dates: start: 20140623, end: 20140627
  18. KETALAR [Concomitant]
     Active Substance: KETAMINE HYDROCHLORIDE
     Dosage: 100 MG
     Route: 051
     Dates: start: 20140607, end: 20140626
  19. TRAMAL [Concomitant]
     Active Substance: TRAMADOL
     Dosage: 200 MG
     Route: 048
     Dates: start: 20140716
  20. METHADONE [Suspect]
     Active Substance: METHADONE HYDROCHLORIDE
     Dosage: 10 MG, 30 MG DAILY DOSE
     Route: 048
     Dates: start: 20140528, end: 20140603
  21. OXINORM [Concomitant]
     Active Substance: OXYCODONE HYDROCHLORIDE
     Indication: ANALGESIC THERAPY
     Dosage: 40 MG, PRN
     Route: 048
     Dates: start: 20140513
  22. OXIFAST [Concomitant]
     Active Substance: OXYCODONE
     Indication: ANALGESIC THERAPY
     Dosage: 20 MG, PRN
     Route: 051
     Dates: start: 20140611
  23. OXIFAST [Concomitant]
     Active Substance: OXYCODONE
     Dosage: 370 MG
     Route: 051
     Dates: start: 20140723, end: 20140730
  24. OXIFAST [Concomitant]
     Active Substance: OXYCODONE
     Dosage: 350 MG
     Route: 051
     Dates: start: 20140731
  25. RIVOTRIL [Concomitant]
     Active Substance: CLONAZEPAM
     Indication: ANALGESIC THERAPY
     Dosage: 1.0 MG
     Route: 048
     Dates: end: 20140605
  26. FUROSEMIDE. [Concomitant]
     Active Substance: FUROSEMIDE
     Dosage: 20 MG
     Route: 048
     Dates: start: 20140528, end: 20140605
  27. ENEVO [Concomitant]
     Dosage: 1 DF
     Route: 048
     Dates: start: 20140630
  28. TAKEPRON [Concomitant]
     Active Substance: LANSOPRAZOLE
     Dosage: 15 MG
     Route: 048
     Dates: start: 20140615, end: 20140714
  29. ACOFIDE [Concomitant]
     Active Substance: ACOTIAMIDE HYDROCHLORIDE
     Dosage: 300 MG
     Route: 048
     Dates: end: 20140605
  30. MUCOSTA [Concomitant]
     Active Substance: REBAMIPIDE
     Dosage: 300 MG
     Route: 048
     Dates: start: 20140715
  31. LINTON [Concomitant]
     Active Substance: HALOPERIDOL
     Dosage: 5 MG
     Route: 051
     Dates: start: 20140604, end: 20140614
  32. KETALAR [Concomitant]
     Active Substance: KETAMINE HYDROCHLORIDE
     Dosage: 100 MG
     Route: 051
     Dates: start: 20140630, end: 20140805
  33. TRAMAL [Concomitant]
     Active Substance: TRAMADOL
     Indication: ANALGESIC THERAPY
     Dosage: 100 MG
     Route: 048
     Dates: start: 20140710, end: 20140716
  34. ELNEOPA NO.1 [Concomitant]
     Dosage: 1000 ML
     Route: 051
     Dates: start: 20140605
  35. ALLOID [Concomitant]
     Dosage: 60 ML
     Route: 048
     Dates: start: 20140702
  36. METHADONE [Suspect]
     Active Substance: METHADONE HYDROCHLORIDE
     Dosage: 15 MG, 45 MG DAILY DOSE
     Route: 048
     Dates: start: 20140725, end: 20140729
  37. TAKEPRON [Concomitant]
     Active Substance: LANSOPRAZOLE
     Dosage: 60 MG
     Route: 042
     Dates: start: 20140604, end: 20140606
  38. BAYASPIRIN [Concomitant]
     Active Substance: ASPIRIN
     Dosage: 200 MG
     Route: 048
     Dates: end: 20140605
  39. MEXILETINE HYDROCHLORIDE. [Concomitant]
     Active Substance: MEXILETINE HYDROCHLORIDE
     Indication: ANALGESIC THERAPY
     Dosage: 300 MG
     Route: 048
     Dates: start: 20140627
  40. KETALAR [Concomitant]
     Active Substance: KETAMINE HYDROCHLORIDE
     Dosage: 50 MG
     Route: 051
     Dates: start: 20140806, end: 20140808
  41. LACTEC [Concomitant]
     Active Substance: CALCIUM CHLORIDE ANHYDROUS\POTASSIUM CHLORIDE\SODIUM CHLORIDE\SODIUM LACTATE
     Dosage: 500 ML
     Route: 051
     Dates: start: 20140604, end: 20140604
  42. METHADONE [Suspect]
     Active Substance: METHADONE HYDROCHLORIDE
     Indication: CANCER PAIN
     Dosage: 5 MG, 15 MG DAILY DOSE
     Route: 048
     Dates: start: 20140514, end: 20140528
  43. METHADONE [Suspect]
     Active Substance: METHADONE HYDROCHLORIDE
     Dosage: 5 MG, 15 MG DAILY DOSE
     Route: 048
     Dates: start: 20140707, end: 20140714
  44. METHADONE [Suspect]
     Active Substance: METHADONE HYDROCHLORIDE
     Dosage: 10 MG, 20 MG DAILY DOSE
     Route: 048
     Dates: start: 20140714, end: 20140716
  45. METHADONE [Suspect]
     Active Substance: METHADONE HYDROCHLORIDE
     Dosage: 10 MG, 30 MG DAILY DOSE
     Route: 048
     Dates: start: 20140717, end: 20140722
  46. METHADONE [Suspect]
     Active Substance: METHADONE HYDROCHLORIDE
     Dosage: 25 MG, 75 MG DAILY DOSE
     Route: 048
     Dates: start: 20140806, end: 20140811
  47. METHADONE [Suspect]
     Active Substance: METHADONE HYDROCHLORIDE
     Dosage: 30 MG, 90 MG DAILY DOSE
     Route: 048
     Dates: start: 20140812
  48. FENTANYL CITRATE. [Concomitant]
     Active Substance: FENTANYL CITRATE
     Indication: ANALGESIC THERAPY
     Dosage: 400 - 800 MCG
     Route: 002
     Dates: start: 20140513
  49. OXIFAST [Concomitant]
     Active Substance: OXYCODONE
     Dosage: 450 MG
     Route: 051
     Dates: start: 20140606, end: 20140606
  50. ALOSENN [Concomitant]
     Active Substance: SENNA LEAF
     Dosage: 1.5 MG
     Route: 048
     Dates: end: 20140605
  51. FLUNITRAZEPAM [Concomitant]
     Active Substance: FLUNITRAZEPAM
     Dosage: 1 MG
     Route: 048
     Dates: end: 20140605
  52. OLIVES [Concomitant]
     Active Substance: LIDOCAINE HYDROCHLORIDE
     Indication: ANALGESIC THERAPY
     Dosage: 500 MG
     Route: 051
     Dates: start: 20140605, end: 20140606
  53. FENTANYL CITRATE. [Concomitant]
     Active Substance: FENTANYL CITRATE
     Dosage: 0.3 MG, PRN
     Route: 051
     Dates: start: 20140516, end: 20140516
  54. FENTOS [Concomitant]
     Active Substance: FENTANYL
     Indication: ANALGESIC THERAPY
     Dosage: 18 MG
     Route: 062
  55. PAMILCON [Concomitant]
     Active Substance: GLYBURIDE
     Dosage: 2.5 MG
     Route: 048
     Dates: end: 20140605
  56. MUCOSTA [Concomitant]
     Active Substance: REBAMIPIDE
     Dosage: 300 MG
     Route: 048
     Dates: end: 20140605
  57. BFLUID [Concomitant]
     Active Substance: AMINO ACIDS\DEXTROSE\ELECTROLYTES NOS\VITAMINS
     Dosage: 500 ML
     Route: 051
     Dates: start: 20140516, end: 20140516
  58. OLIVES [Concomitant]
     Active Substance: LIDOCAINE HYDROCHLORIDE
     Dosage: 500 MG
     Route: 051
     Dates: start: 20140623, end: 20140627
  59. PARIET [Concomitant]
     Active Substance: RABEPRAZOLE SODIUM
     Dosage: 10 MG
     Route: 048
     Dates: start: 20140715

REACTIONS (3)
  - Intestinal obstruction [Recovered/Resolved]
  - Peritonitis [Recovering/Resolving]
  - Asthma [Recovering/Resolving]

NARRATIVE: CASE EVENT DATE: 20140604
